FAERS Safety Report 12990261 (Version 1)
Quarter: 2016Q4

REPORT INFORMATION
  Report Type: Spontaneous
  Country: US (occurrence: US)
  Receive Date: 20161201
  Receipt Date: 20161201
  Transmission Date: 20170207
  Serious: Yes (Hospitalization, Other)
  Sender: FDA-Public Use
  Company Number: US-GLAXOSMITHKLINE-US2016GSK175853

PATIENT
  Sex: Female
  Weight: 62.13 kg

DRUGS (1)
  1. COREG [Suspect]
     Active Substance: CARVEDILOL
     Indication: PRODUCT USED FOR UNKNOWN INDICATION
     Dosage: 3.125 MG, BID

REACTIONS (11)
  - Fatigue [Unknown]
  - Dyspnoea exertional [Unknown]
  - Malabsorption [Unknown]
  - Amyloidosis [Unknown]
  - Dyspnoea [Unknown]
  - Ejection fraction decreased [Unknown]
  - Congestive cardiomyopathy [Unknown]
  - Orthopnoea [Unknown]
  - Condition aggravated [Unknown]
  - Cardiac failure congestive [Unknown]
  - Dyspnoea paroxysmal nocturnal [Unknown]
